FAERS Safety Report 15566004 (Version 3)
Quarter: 2019Q2

REPORT INFORMATION
  Report Type: Report from Study
  Country: JP (occurrence: JP)
  Receive Date: 20181030
  Receipt Date: 20190502
  Transmission Date: 20190711
  Serious: Yes (Other)
  Sender: FDA-Public Use
  Company Number: JP-JNJFOC-20181039884

PATIENT
  Age: 58 Year
  Sex: Female
  Weight: 55.65 kg

DRUGS (12)
  1. SODIUM PICOSULFATE [Concomitant]
     Active Substance: SODIUM PICOSULFATE
     Indication: CONSTIPATION
     Route: 048
     Dates: start: 20171203, end: 20171216
  2. LYRICA [Concomitant]
     Active Substance: PREGABALIN
     Indication: PLASMA CELL MYELOMA
     Route: 048
  3. PANTETHINE [Concomitant]
     Active Substance: PANTETHINE
     Indication: CONSTIPATION
     Route: 065
  4. DEXAMETHASONE. [Concomitant]
     Active Substance: DEXAMETHASONE
     Indication: PLASMA CELL MYELOMA
     Route: 065
     Dates: start: 20171129
  5. MEYLON [Concomitant]
     Active Substance: SODIUM BICARBONATE
     Indication: PLASMA CELL MYELOMA
     Route: 065
     Dates: start: 20171128, end: 20171129
  6. DARZALEX [Suspect]
     Active Substance: DARATUMUMAB
     Indication: PLASMA CELL MYELOMA
     Route: 041
     Dates: start: 20171128
  7. DAIPHEN [Concomitant]
     Active Substance: SULFAMETHOXAZOLE\TRIMETHOPRIM
     Indication: PLASMA CELL MYELOMA
     Route: 048
     Dates: start: 20171127
  8. FLUCONAZOLE. [Concomitant]
     Active Substance: FLUCONAZOLE
     Indication: PLASMA CELL MYELOMA
     Route: 065
  9. MEYLON [Concomitant]
     Active Substance: SODIUM BICARBONATE
     Indication: PLASMA CELL MYELOMA
     Route: 065
     Dates: start: 20171205, end: 20171206
  10. ACICLOVIR [Concomitant]
     Active Substance: ACYCLOVIR
     Indication: PLASMA CELL MYELOMA
     Route: 065
  11. SOLU-CORTEF [Concomitant]
     Active Substance: HYDROCORTISONE SODIUM SUCCINATE
     Indication: OROPHARYNGEAL DISCOMFORT
     Route: 065
  12. VELCADE [Suspect]
     Active Substance: BORTEZOMIB
     Indication: PLASMA CELL MYELOMA
     Route: 065
     Dates: start: 20171128

REACTIONS (8)
  - Liver disorder [Recovering/Resolving]
  - Oropharyngeal discomfort [Recovering/Resolving]
  - Infusion related reaction [Recovering/Resolving]
  - Cough [Recovering/Resolving]
  - Hypoaesthesia [Recovering/Resolving]
  - Platelet count decreased [Recovering/Resolving]
  - Constipation [Recovered/Resolved]
  - Activated partial thromboplastin time prolonged [Recovered/Resolved]

NARRATIVE: CASE EVENT DATE: 20171128
